FAERS Safety Report 7878341-5 (Version None)
Quarter: 2011Q4

REPORT INFORMATION
  Report Type: 
  Country: None (occurrence: None)
  Receive Date: 20111028
  Receipt Date: 20111017
  Transmission Date: 20120403
  Serious: Yes (Hospitalization)
  Sender: FDA-Public Use
  Company Number: TPA2011A05983

PATIENT
  Age: 59 Year
  Sex: Male
  Weight: 81.6475 kg

DRUGS (8)
  1. CRESTOR [Concomitant]
  2. NITROGLYCERIN [Concomitant]
  3. ACTOS [Suspect]
     Indication: TYPE 2 DIABETES MELLITUS
     Dosage: 30 MG, 1 IN 1 D, PER ORAL
     Route: 048
     Dates: start: 20090601, end: 20110901
  4. MULTIVITAMIN [Concomitant]
  5. ASPIR (ACETYLSALICYLIC ACID [Concomitant]
  6. FISH OIL (FISH OIL) [Concomitant]
  7. AMBIEN [Concomitant]
  8. GLUCOVANCE [Concomitant]

REACTIONS (1)
  - PROSTATE CANCER [None]
